FAERS Safety Report 5837559-3 (Version None)
Quarter: 2008Q3

REPORT INFORMATION
  Report Type: 
  Country: None (occurrence: None)
  Receive Date: 20080807
  Receipt Date: 20080731
  Transmission Date: 20090109
  Serious: Yes (Death)
  Sender: FDA-Public Use
  Company Number: US-AMGEN-US298609

PATIENT
  Age: 53 Year
  Sex: Male

DRUGS (7)
  1. NEUPOGEN [Suspect]
     Indication: PERIPHERAL BLOOD STEM CELL APHERESIS
     Dates: start: 20010201
  2. LEUKINE [Suspect]
     Dates: start: 20010201
  3. VINCRISTINE [Concomitant]
  4. DOXORUBICIN HYDROCHLORIDE [Concomitant]
     Dates: start: 20071101
  5. DEXAMETHASONE [Concomitant]
     Dates: start: 20071101
  6. CYCLOPHOSPHAMIDE [Concomitant]
     Dates: start: 20010201
  7. MELPHALAN [Concomitant]
     Dates: start: 20010601

REACTIONS (3)
  - ASCITES [None]
  - PERITONEAL HAEMORRHAGE [None]
  - SPLENIC RUPTURE [None]
